FAERS Safety Report 8630481 (Version 6)
Quarter: 2013Q4

REPORT INFORMATION
  Report Type: Report from Study
  Country: GB (occurrence: GB)
  Receive Date: 20120622
  Receipt Date: 20131204
  Transmission Date: 20140711
  Serious: Yes (Death, Hospitalization)
  Sender: FDA-Public Use
  Company Number: GB-ROCHE-1080862

PATIENT
  Age: 79 Year
  Sex: Male

DRUGS (10)
  1. LUCENTIS [Suspect]
     Indication: AGE-RELATED MACULAR DEGENERATION
     Route: 050
     Dates: start: 20110615
  2. LUCENTIS [Suspect]
     Route: 050
     Dates: start: 20111109
  3. CANDESARTAN [Concomitant]
  4. METFORMIN [Concomitant]
  5. TAMSULOSIN [Concomitant]
  6. NITRAZEPAM [Concomitant]
  7. ASPIRIN [Concomitant]
  8. BEZAFIBRATE [Concomitant]
  9. OMEPRAZOLE [Concomitant]
  10. DEXAMETHASONE [Concomitant]

REACTIONS (2)
  - Glioblastoma multiforme [Fatal]
  - Brain neoplasm [Unknown]
